FAERS Safety Report 10811112 (Version 1)
Quarter: 2015Q1

REPORT INFORMATION
  Report Type: Report from Study
  Country: US (occurrence: US)
  Receive Date: 20150217
  Receipt Date: 20150217
  Transmission Date: 20150721
  Serious: No
  Sender: FDA-Public Use
  Company Number: US-ABBVIE-14K-163-1226381-00

PATIENT
  Age: 25 Year
  Sex: Male

DRUGS (6)
  1. HUMIRA [Suspect]
     Active Substance: ADALIMUMAB
     Indication: COLITIS ULCERATIVE
     Dates: start: 2013, end: 2013
  2. HUMIRA [Suspect]
     Active Substance: ADALIMUMAB
  3. HUMIRA [Suspect]
     Active Substance: ADALIMUMAB
     Dosage: IN TWO WEEKS
  4. PREDNISONE. [Concomitant]
     Active Substance: PREDNISONE
     Indication: COLITIS ULCERATIVE
  5. PREDNISONE. [Concomitant]
     Active Substance: PREDNISONE
  6. 6-MP [Concomitant]
     Active Substance: MERCAPTOPURINE
     Indication: COLITIS ULCERATIVE

REACTIONS (2)
  - Colitis ulcerative [Recovered/Resolved]
  - Fatigue [Recovered/Resolved]

NARRATIVE: CASE EVENT DATE: 201403
